FAERS Safety Report 10229012 (Version 1)
Quarter: 2014Q2

REPORT INFORMATION
  Report Type: Spontaneous
  Country: CN (occurrence: CN)
  Receive Date: 20140610
  Receipt Date: 20140610
  Transmission Date: 20141212
  Serious: Yes (Other)
  Sender: FDA-Public Use
  Company Number: CN-ASTRAZENECA-2014SE40141

PATIENT
  Age: 30681 Day
  Sex: Male

DRUGS (1)
  1. ESOMEPRAZOLE [Suspect]
     Indication: GASTROINTESTINAL HAEMORRHAGE
     Route: 041
     Dates: start: 20131113, end: 20131115

REACTIONS (4)
  - Mental disorder [Recovered/Resolved]
  - Personality disorder [Unknown]
  - Tachyphrenia [Unknown]
  - Aggression [Recovered/Resolved]
